FAERS Safety Report 9074277 (Version 1)
Quarter: 2013Q1

REPORT INFORMATION
  Report Type: Report from Study
  Country: US (occurrence: US)
  Receive Date: 20130128
  Receipt Date: 20130128
  Transmission Date: 20140127
  Serious: No
  Sender: FDA-Public Use
  Company Number: US-ABBOTT-12P-163-0909752-00

PATIENT
  Age: 31 Year
  Sex: Male

DRUGS (14)
  1. HUMIRA 40 MG/0.8 ML PEN [Suspect]
     Indication: PSORIASIS
     Dates: start: 20111223
  2. HUMIRA 40 MG/0.8 ML PEN [Suspect]
     Dates: end: 20120221
  3. WELLBUTRIN [Concomitant]
     Indication: ANXIETY
  4. LODINE [Concomitant]
     Indication: OSTEOARTHRITIS
  5. ALBUTEROL [Concomitant]
     Indication: ASTHMA
  6. CLOBETASOL [Concomitant]
     Indication: PSORIASIS
     Route: 061
  7. SALICYLIC ACID [Concomitant]
     Indication: PSORIASIS
     Route: 061
  8. MULTIVITAMIN [Concomitant]
     Indication: PRODUCT USED FOR UNKNOWN INDICATION
  9. VITAMIN C [Concomitant]
     Indication: PRODUCT USED FOR UNKNOWN INDICATION
  10. MILK THISTLE [Concomitant]
     Indication: PRODUCT USED FOR UNKNOWN INDICATION
  11. GLUCOSAMIN/CHONDROITIN WITH ^MSM^ [Concomitant]
     Indication: PRODUCT USED FOR UNKNOWN INDICATION
  12. METAMUCIL [Concomitant]
     Indication: PRODUCT USED FOR UNKNOWN INDICATION
  13. HEMP OIL [Concomitant]
     Indication: PRODUCT USED FOR UNKNOWN INDICATION
  14. HIGH PROTEIN WHEY PROTEIN SHAKE [Concomitant]
     Indication: PRODUCT USED FOR UNKNOWN INDICATION
     Dosage: EVERY MORNING

REACTIONS (2)
  - Psoriasis [Recovering/Resolving]
  - Migraine [Recovering/Resolving]
